FAERS Safety Report 19728735 (Version 6)
Quarter: 2021Q4

REPORT INFORMATION
  Report Type: Spontaneous
  Country: US (occurrence: US)
  Receive Date: 20210820
  Receipt Date: 20211027
  Transmission Date: 20220303
  Serious: Yes (Other)
  Sender: FDA-Public Use
  Company Number: US-ELI_LILLY_AND_COMPANY-US202108008429

PATIENT
  Sex: Female

DRUGS (4)
  1. BAQSIMI [Suspect]
     Active Substance: GLUCAGON
     Indication: Hypoglycaemia
     Dosage: 3 MG, UNKNOWN
     Route: 065
     Dates: start: 20210815
  2. BAQSIMI [Suspect]
     Active Substance: GLUCAGON
     Indication: Hypoglycaemia
     Dosage: 3 MG, UNKNOWN
     Route: 065
     Dates: start: 20210815
  3. BAQSIMI [Suspect]
     Active Substance: GLUCAGON
     Dosage: 3 MG, UNKNOWN
     Route: 065
     Dates: start: 20210815
  4. BAQSIMI [Suspect]
     Active Substance: GLUCAGON
     Dosage: 3 MG, UNKNOWN
     Route: 065
     Dates: start: 20210815

REACTIONS (22)
  - Hypoglycaemia [Unknown]
  - Thinking abnormal [Not Recovered/Not Resolved]
  - Eye pain [Unknown]
  - Hyperhidrosis [Not Recovered/Not Resolved]
  - Euphoric mood [Not Recovered/Not Resolved]
  - Insomnia [Not Recovered/Not Resolved]
  - Dizziness [Unknown]
  - Ocular discomfort [Unknown]
  - Limb injury [Not Recovered/Not Resolved]
  - Head discomfort [Unknown]
  - Viral infection [Not Recovered/Not Resolved]
  - Brain injury [Not Recovered/Not Resolved]
  - Head banging [Unknown]
  - Hypoglycaemia [Not Recovered/Not Resolved]
  - Mobility decreased [Unknown]
  - Depressed mood [Unknown]
  - Illness [Unknown]
  - Fatigue [Recovering/Resolving]
  - Rhinalgia [Recovering/Resolving]
  - Headache [Not Recovered/Not Resolved]
  - Cough [Not Recovered/Not Resolved]
  - Application site pain [Recovering/Resolving]
